FAERS Safety Report 23469859 (Version 1)
Quarter: 2024Q1

REPORT INFORMATION
  Report Type: Report from Study
  Country: CA (occurrence: CA)
  Receive Date: 20240202
  Receipt Date: 20240202
  Transmission Date: 20240409
  Serious: Yes (Other)
  Sender: FDA-Public Use
  Company Number: CA-IGSA-BIG0027398

PATIENT
  Sex: Female

DRUGS (5)
  1. PROLASTIN [Suspect]
     Active Substance: .ALPHA.1-PROTEINASE INHIBITOR HUMAN
     Indication: Alpha-1 antitrypsin deficiency
     Dosage: 4000 MILLIGRAM, Q.WK.
     Route: 042
     Dates: start: 20180301
  2. METOPROLOL [Concomitant]
     Active Substance: METOPROLOL
  3. DILANTIN [Concomitant]
     Active Substance: PHENYTOIN
  4. ASPIRIN [Concomitant]
     Active Substance: ASPIRIN
  5. ZENHALE [Concomitant]
     Active Substance: FORMOTEROL FUMARATE\MOMETASONE FUROATE

REACTIONS (1)
  - Lymphoma [Unknown]
